FAERS Safety Report 5950150-3 (Version None)
Quarter: 2008Q4

REPORT INFORMATION
  Report Type: 
  Country: None (occurrence: None)
  Receive Date: 20081112
  Receipt Date: 20071204
  Transmission Date: 20090506
  Serious: No
  Sender: FDA-Public Use
  Company Number: US-BAYER-US-2007-043117

PATIENT
  Age: 68 Year
  Sex: Male
  Weight: 86 kg

DRUGS (6)
  1. BETAPACE AF [Suspect]
     Indication: ATRIAL FIBRILLATION
     Dosage: UNIT DOSE: 120 MG
     Route: 048
     Dates: start: 20071005
  2. BETAPACE AF [Suspect]
  3. LASIX [Concomitant]
     Indication: FLUID RETENTION
     Dosage: UNIT DOSE: 40 MG
     Route: 048
     Dates: start: 20060101
  4. POTASSIUM CHLORIDE [Concomitant]
     Indication: SUPPLEMENTATION THERAPY
     Dosage: UNIT DOSE: 20 MEQ
     Route: 048
     Dates: start: 20070101
  5. MAGNESIUM SULFATE [Concomitant]
     Dosage: UNIT DOSE: 64 ?G
     Route: 048
  6. WARFARIN SODIUM [Concomitant]
     Indication: MITRAL VALVE REPLACEMENT
     Dosage: UNIT DOSE: 4 MG
     Route: 048
     Dates: start: 20040101

REACTIONS (1)
  - TACHYCARDIA [None]
